FAERS Safety Report 8928780 (Version 1)
Quarter: 2012Q4

REPORT INFORMATION
  Report Type: 
  Country: US (occurrence: US)
  Receive Date: 20121128
  Receipt Date: 20121128
  Transmission Date: 20130627
  Serious: Yes (Hospitalization)
  Sender: FDA-Public Use
  Company Number: US-PAR PHARMACEUTICAL, INC-2012SCPR004731

PATIENT

DRUGS (6)
  1. METRONIDAZOLE [Suspect]
     Indication: ABDOMINAL ABSCESS
     Dosage: UNK, Unknown
     Route: 042
  2. METRONIDAZOLE [Suspect]
     Indication: ENTEROVESICAL FISTULA
  3. VANCOMYCIN [Suspect]
     Indication: ABDOMINAL ABSCESS
     Dosage: UNK, Unknown
     Route: 042
  4. VANCOMYCIN [Suspect]
     Indication: ENTEROVESICAL FISTULA
  5. LEVOFLOXACIN [Suspect]
     Indication: ABDOMINAL ABSCESS
     Dosage: UNK, Unknown
     Route: 042
  6. LEVOFLOXACIN [Suspect]
     Indication: ENTEROVESICAL FISTULA

REACTIONS (1)
  - Drug reaction with eosinophilia and systemic symptoms [Recovering/Resolving]
